FAERS Safety Report 4649864-7 (Version None)
Quarter: 2005Q2

REPORT INFORMATION
  Report Type: 
  Country: None (occurrence: None)
  Receive Date: 20050502
  Receipt Date: 20050421
  Transmission Date: 20051028
  Serious: Yes (Other)
  Sender: FDA-Public Use
  Company Number: US-KINGPHARMUSA00001-K200500527

PATIENT
  Sex: Male

DRUGS (1)
  1. FLORINEF [Suspect]
     Route: 048

REACTIONS (2)
  - HYPERSENSITIVITY [None]
  - REACTION TO COLOURING [None]
